FAERS Safety Report 7577365-5 (Version None)
Quarter: 2011Q2

REPORT INFORMATION
  Report Type: 
  Country: None (occurrence: None)
  Receive Date: 20110621
  Receipt Date: 20110606
  Transmission Date: 20111010
  Serious: Yes (Life-Threatening, Hospitalization, Disabling, Other)
  Sender: FDA-Public Use
  Company Number: AUR-APL-2011-01121

PATIENT
  Age: 55 Year
  Sex: Female
  Weight: 84 kg

DRUGS (4)
  1. NIACIN [Suspect]
     Indication: PRODUCT USED FOR UNKNOWN INDICATION
     Dosage: ORAL
     Route: 048
     Dates: start: 20090501, end: 20090801
  2. SIMVASTATIN [Suspect]
     Indication: BLOOD CHOLESTEROL INCREASED
     Dosage: 40 MG (40 MG, 1 IN 1 D), ORAL
     Route: 048
     Dates: start: 20031001, end: 20090201
  3. SIMVASTATIN [Suspect]
     Indication: BLOOD CHOLESTEROL INCREASED
     Dosage: 40 MG (40 MG, 1 IN 1 D), ORAL
     Route: 048
     Dates: start: 20090801, end: 20100405
  4. BEZAFIBRATE (BEZAFIBRATE) [Suspect]
     Indication: BLOOD CHOLESTEROL INCREASED
     Dosage: ORAL
     Route: 048
     Dates: start: 20090401, end: 20090501

REACTIONS (17)
  - AUTOIMMUNE HEPATITIS [None]
  - SYNCOPE [None]
  - RHABDOMYOLYSIS [None]
  - JAUNDICE [None]
  - GENERAL PHYSICAL HEALTH DETERIORATION [None]
  - CHOLELITHIASIS [None]
  - NECROSIS [None]
  - IMMOBILE [None]
  - CHRONIC HEPATITIS [None]
  - HYPERGLYCAEMIA [None]
  - MYOPATHY [None]
  - HEADACHE [None]
  - FIBROSIS [None]
  - RENAL FAILURE ACUTE [None]
  - NAUSEA [None]
  - ANTINUCLEAR ANTIBODY POSITIVE [None]
  - SPIDER NAEVUS [None]
